FAERS Safety Report 4865252-2 (Version None)
Quarter: 2005Q4

REPORT INFORMATION
  Report Type: 
  Country: None (occurrence: None)
  Receive Date: 20051223
  Receipt Date: 20051220
  Transmission Date: 20060501
  Serious: Yes (Hospitalization)
  Sender: FDA-Public Use
  Company Number: 2005024912

PATIENT
  Age: 68 Year
  Sex: Male

DRUGS (1)
  1. QUILONUM RETARD [Suspect]
     Dosage: 450MG UNKNOWN
     Route: 048
     Dates: end: 20051218

REACTIONS (2)
  - DRUG TOXICITY [None]
  - RESPIRATORY FAILURE [None]
